FAERS Safety Report 11604642 (Version 1)
Quarter: 2015Q4

REPORT INFORMATION
  Report Type: Spontaneous
  Country: US (occurrence: None)
  Receive Date: 20151006
  Receipt Date: 20151006
  Transmission Date: 20160304
  Serious: Yes (Disabling)
  Sender: FDA-Public Use
  Company Number: None

PATIENT
  Age: 57 Year
  Sex: Female
  Weight: 57.15 kg

DRUGS (12)
  1. ZOMETA [Suspect]
     Active Substance: ZOLEDRONIC ACID
     Indication: PLASMA CELL MYELOMA
     Dosage: ONLY HAD 1 DOSE
     Route: 042
     Dates: start: 20150817
  2. VALTREX [Concomitant]
     Active Substance: VALACYCLOVIR HYDROCHLORIDE
  3. TUMERIC [Concomitant]
     Active Substance: TURMERIC
  4. BENADRYL [Concomitant]
     Active Substance: DIPHENHYDRAMINE HYDROCHLORIDE
  5. ATIVAN [Concomitant]
     Active Substance: LORAZEPAM
  6. OXY [Concomitant]
     Active Substance: BENZOYL PEROXIDE
  7. VITAMIN B COMPLEX [Concomitant]
     Active Substance: CYANOCOBALAMIN\DEXPANTHENOL\NIACINAMIDE\PYRIDOXINE HYDROCHLORIDE\RIBOFLAVIN 5^-PHOSPHATE SODIUM\THIAMINE HYDROCHLORIDE\VITAMIN B COMPLEX
  8. TYLENOL [Concomitant]
     Active Substance: ACETAMINOPHEN
  9. VITAMIN D [Concomitant]
     Active Substance: CHOLECALCIFEROL
  10. BIOTIN [Suspect]
     Active Substance: BIOTIN
  11. ZOMETA [Suspect]
     Active Substance: ZOLEDRONIC ACID
     Indication: OSTEOPENIA
     Dosage: ONLY HAD 1 DOSE
     Route: 042
     Dates: start: 20150817
  12. ZOMETA [Suspect]
     Active Substance: ZOLEDRONIC ACID
     Indication: OSTEOPOROSIS
     Dosage: ONLY HAD 1 DOSE
     Route: 042
     Dates: start: 20150817

REACTIONS (8)
  - Paraesthesia [None]
  - Pain in extremity [None]
  - Movement disorder [None]
  - Myalgia [None]
  - Arthralgia [None]
  - Muscle tightness [None]
  - Bone disorder [None]
  - Bone pain [None]

NARRATIVE: CASE EVENT DATE: 20150829
